FAERS Safety Report 9113869 (Version 1)
Quarter: 2013Q1

REPORT INFORMATION
  Report Type: Report from Study
  Country: US (occurrence: US)
  Receive Date: 20130129
  Receipt Date: 20130129
  Transmission Date: 20140127
  Serious: No
  Sender: FDA-Public Use
  Company Number: US-ABBOTT-12P-163-0941243-00

PATIENT
  Age: 53 Year
  Sex: Female
  Weight: 47.67 kg

DRUGS (1)
  1. HUMIRA 40 MG/0.8 ML PEN [Suspect]
     Indication: PRODUCT USED FOR UNKNOWN INDICATION
     Route: 058
     Dates: start: 20111219, end: 20120524

REACTIONS (4)
  - Malaise [Unknown]
  - Pharyngitis streptococcal [Unknown]
  - Viral infection [Unknown]
  - Gastric infection [Unknown]
